FAERS Safety Report 4581981-2 (Version None)
Quarter: 2005Q1

REPORT INFORMATION
  Report Type: 
  Country: None (occurrence: None)
  Receive Date: 20050119
  Receipt Date: 20040716
  Transmission Date: 20050727
  Serious: Yes (Death, Hospitalization)
  Sender: FDA-Public Use
  Company Number: US-JNJFOC-20040707557

PATIENT
  Age: 48 Year
  Sex: Female
  Weight: 88.905 kg

DRUGS (13)
  1. DOXIL [Suspect]
     Indication: PERITONEAL CARCINOMA
     Dosage: 80MG  X2 CYCLES
     Dates: start: 20030421, end: 20030512
  2. PROCRIT (INJECTION)  ERYTHROPOIETIN [Concomitant]
  3. SYNTHROID [Concomitant]
  4. PROTONIX [Concomitant]
  5. PLAVIX [Concomitant]
  6. OXYCODONE (OXYCODONE) [Concomitant]
  7. HEPARIN [Concomitant]
  8. IRON (IRON) [Concomitant]
  9. VITAMIN C (ASCORBIC ACID) [Concomitant]
  10. HERBS (HERBAL PREPARATION) [Concomitant]
  11. OXYCONTIN [Concomitant]
  12. DECADRON [Concomitant]
  13. ANZEMET (DOLASETRON MESILATE) [Concomitant]

REACTIONS (13)
  - ABDOMINAL PAIN [None]
  - ANAEMIA [None]
  - ANOREXIA [None]
  - BACK PAIN [None]
  - CONFUSIONAL STATE [None]
  - DIARRHOEA [None]
  - FATIGUE [None]
  - LEUKOCYTOSIS [None]
  - MALIGNANT NEOPLASM PROGRESSION [None]
  - NAUSEA [None]
  - PYREXIA [None]
  - RECTAL HAEMORRHAGE [None]
  - THROMBOCYTOPENIA [None]
